FAERS Safety Report 9889824 (Version 3)
Quarter: 2015Q3

REPORT INFORMATION
  Report Type: Spontaneous
  Country: AU (occurrence: AU)
  Receive Date: 20140212
  Receipt Date: 20150901
  Transmission Date: 20151125
  Serious: Yes (Hospitalization, Other)
  Sender: FDA-Public Use
  Company Number: AU-ROCHE-1347024

PATIENT
  Age: 83 Year
  Sex: Female

DRUGS (5)
  1. LUCENTIS [Suspect]
     Active Substance: RANIBIZUMAB
     Dosage: REDUCED VOLUME
     Route: 050
     Dates: start: 20131107, end: 20131107
  2. LUCENTIS [Suspect]
     Active Substance: RANIBIZUMAB
     Dosage: REDUCED VOLUME
     Route: 050
     Dates: start: 20091216
  3. LUCENTIS [Suspect]
     Active Substance: RANIBIZUMAB
     Dosage: REDUSED VOLUME
     Route: 050
     Dates: start: 20091030
  4. LUCENTIS [Suspect]
     Active Substance: RANIBIZUMAB
     Dosage: REDUCED VOLUME
     Route: 050
     Dates: start: 20131012
  5. LUCENTIS [Suspect]
     Active Substance: RANIBIZUMAB
     Indication: NEOVASCULAR AGE-RELATED MACULAR DEGENERATION
     Route: 050
     Dates: start: 20091014

REACTIONS (8)
  - Dehydration [Recovered/Resolved]
  - Transient ischaemic attack [Recovered/Resolved]
  - Dyspnoea paroxysmal nocturnal [Unknown]
  - Confusional state [Unknown]
  - Dizziness [Unknown]
  - Peptic ulcer [Unknown]
  - Polyuria [Recovered/Resolved]
  - Underdose [Unknown]

NARRATIVE: CASE EVENT DATE: 20091217
